FAERS Safety Report 7972009-2 (Version None)
Quarter: 2011Q4

REPORT INFORMATION
  Report Type: 
  Country: None (occurrence: None)
  Receive Date: 20111212
  Receipt Date: 20111202
  Transmission Date: 20120403
  Serious: Yes (Hospitalization, Disabling, Other)
  Sender: FDA-Public Use
  Company Number: US-ASTRAZENECA-2011SE36357

PATIENT
  Age: 81 Year
  Sex: Male

DRUGS (2)
  1. CRESTOR [Suspect]
     Route: 048
  2. CRESTOR [Suspect]
     Route: 048

REACTIONS (8)
  - MYOCARDIAL INFARCTION [None]
  - CORONARY ARTERY BYPASS [None]
  - PNEUMONIA [None]
  - BLINDNESS [None]
  - CARDIAC INFECTION [None]
  - WRONG DRUG ADMINISTERED [None]
  - CLOSTRIDIAL INFECTION [None]
  - HOSPITALISATION [None]
